FAERS Safety Report 10302414 (Version 5)
Quarter: 2015Q3

REPORT INFORMATION
  Report Type: Report from Study
  Country: US (occurrence: US)
  Receive Date: 20140714
  Receipt Date: 20150707
  Transmission Date: 20151125
  Serious: Yes (Other)
  Sender: FDA-Public Use
  Company Number: US-SA-2014SA041000

PATIENT
  Age: 66 Year
  Sex: Female

DRUGS (2)
  1. AUBAGIO [Suspect]
     Active Substance: TERIFLUNOMIDE
     Indication: MULTIPLE SCLEROSIS
     Route: 048
     Dates: start: 20140326
  2. AUBAGIO [Suspect]
     Active Substance: TERIFLUNOMIDE
     Indication: MULTIPLE SCLEROSIS
     Route: 048
     Dates: start: 2014

REACTIONS (13)
  - Diarrhoea [Unknown]
  - Eructation [Unknown]
  - Balance disorder [Unknown]
  - Vision blurred [Unknown]
  - Distractibility [Unknown]
  - Nausea [Unknown]
  - Blood pressure abnormal [Unknown]
  - Memory impairment [Unknown]
  - Wheelchair user [Unknown]
  - Alopecia [Unknown]
  - Diabetes mellitus [Unknown]
  - Fatigue [Unknown]
  - Drug dose omission [Unknown]

NARRATIVE: CASE EVENT DATE: 2014
